FAERS Safety Report 5556079-7 (Version None)
Quarter: 2007Q4

REPORT INFORMATION
  Report Type: 
  Country: None (occurrence: None)
  Receive Date: 20071213
  Receipt Date: 20071211
  Transmission Date: 20080405
  Serious: Yes (Hospitalization)
  Sender: FDA-Public Use
  Company Number: PHNU2007DE04158

PATIENT
  Sex: Female
  Weight: 57 kg

DRUGS (1)
  1. RECLAST [Suspect]
     Indication: OSTEOPOROSIS
     Dosage: 5 MG, ONCE/SINGLE
     Route: 042
     Dates: start: 20071207

REACTIONS (4)
  - CONVULSION [None]
  - DIZZINESS [None]
  - NAUSEA [None]
  - VOMITING [None]
